FAERS Safety Report 7559902-X (Version None)
Quarter: 2011Q2

REPORT INFORMATION
  Report Type: 
  Country: None (occurrence: None)
  Receive Date: 20110617
  Receipt Date: 20110617
  Transmission Date: 20111010
  Serious: Yes (Life-Threatening)
  Sender: FDA-Public Use
  Company Number: None

PATIENT
  Age: 49 Year
  Sex: Female
  Weight: 111.1313 kg

DRUGS (10)
  1. AVELOX [Suspect]
     Indication: SINUSITIS
     Dosage: 400 MG 1 PO
     Route: 048
     Dates: start: 20110604, end: 20110604
  2. LASIX [Concomitant]
  3. DIOVAN [Concomitant]
  4. ATENOLOL [Concomitant]
  5. POTASSIUM CHLORIDE [Concomitant]
  6. MULTIVITIM PLUS IRON [Concomitant]
  7. VIT D [Concomitant]
  8. TRACLEER [Concomitant]
  9. ALDACTONE [Concomitant]
  10. CALCIUM/MAGNESIUM/ZINC [Concomitant]

REACTIONS (16)
  - PRURITUS GENERALISED [None]
  - FATIGUE [None]
  - TREMOR [None]
  - DYSPNOEA [None]
  - BURNING SENSATION [None]
  - PALPITATIONS [None]
  - MYALGIA [None]
  - PAIN [None]
  - OEDEMA PERIPHERAL [None]
  - CHILLS [None]
  - PANIC ATTACK [None]
  - PAIN IN EXTREMITY [None]
  - FEELING HOT [None]
  - FEELING ABNORMAL [None]
  - PARAESTHESIA [None]
  - SOMNOLENCE [None]
